FAERS Safety Report 7964160-8 (Version None)
Quarter: 2011Q4

REPORT INFORMATION
  Report Type: 
  Country: None (occurrence: None)
  Receive Date: 20111208
  Receipt Date: 20111125
  Transmission Date: 20120403
  Serious: Yes (Other)
  Sender: FDA-Public Use
  Company Number: KR-BRISTOL-MYERS SQUIBB COMPANY-16275505

PATIENT
  Age: 23 Year
  Sex: Female

DRUGS (1)
  1. MITOMYCIN [Suspect]
     Indication: VISUAL ACUITY REDUCED
     Route: 031

REACTIONS (2)
  - VISUAL ACUITY REDUCED [None]
  - CORNEAL SCAR [None]
